FAERS Safety Report 5753464-5 (Version None)
Quarter: 2008Q2

REPORT INFORMATION
  Report Type: 
  Country: None (occurrence: None)
  Receive Date: 20080527
  Receipt Date: 20080513
  Transmission Date: 20081010
  Serious: Yes (Other)
  Sender: FDA-Public Use
  Company Number: GXKR2008US04449

PATIENT
  Sex: Female
  Weight: 2.3 kg

DRUGS (4)
  1. CITALOPRAM HYDROBROMIDE [Suspect]
     Dosage: TRANSPLACENTAL
     Route: 064
  2. ONDANSETRON [Suspect]
     Dosage: TRANSPLACENTAL
     Route: 064
  3. URSODIOL (URSODEOXYCHOLIC ACID) [Concomitant]
  4. ZANTAC [Concomitant]

REACTIONS (9)
  - DRUG EXPOSURE DURING PREGNANCY [None]
  - DRUG INTERACTION [None]
  - DRUG WITHDRAWAL SYNDROME NEONATAL [None]
  - EXTRAPYRAMIDAL DISORDER [None]
  - GRUNTING [None]
  - HYPERTONIA [None]
  - MATERNAL DRUGS AFFECTING FOETUS [None]
  - METABOLIC ACIDOSIS [None]
  - NEONATAL RESPIRATORY DISTRESS SYNDROME [None]
